FAERS Safety Report 12379408 (Version 4)
Quarter: 2019Q4

REPORT INFORMATION
  Report Type: Spontaneous
  Country: US (occurrence: US)
  Receive Date: 20160517
  Receipt Date: 20191004
  Transmission Date: 20200122
  Serious: No
  Sender: FDA-Public Use
  Company Number: US-009507513-1605USA008500

PATIENT
  Sex: Female
  Weight: 95.24 kg

DRUGS (1)
  1. ZOCOR [Suspect]
     Active Substance: SIMVASTATIN
     Dosage: UNK
     Route: 048

REACTIONS (4)
  - Pain in extremity [Unknown]
  - Drug hypersensitivity [Unknown]
  - Headache [Unknown]
  - Swelling [Unknown]
